FAERS Safety Report 4358224-8 (Version None)
Quarter: 2004Q2

REPORT INFORMATION
  Report Type: 
  Country: None (occurrence: None)
  Receive Date: 20040513
  Receipt Date: 20040513
  Transmission Date: 20050107
  Serious: No
  Sender: FDA-Public Use
  Company Number: None

PATIENT
  Sex: Female
  Weight: 117 kg

DRUGS (1)
  1. AUGMENTIN '875' [Suspect]
     Dosage: 1 TABLET BID ORAL
     Route: 048
     Dates: start: 20040123, end: 20040206

REACTIONS (2)
  - PRURITUS [None]
  - URTICARIA [None]
